FAERS Safety Report 8575314-4 (Version None)
Quarter: 2012Q3

REPORT INFORMATION
  Report Type: 
  Country: None (occurrence: None)
  Receive Date: 20120807
  Receipt Date: 20120801
  Transmission Date: 20120928
  Serious: No
  Sender: FDA-Public Use
  Company Number: US-PFIZER INC-2012143636

PATIENT
  Age: 56 Year
  Sex: Female
  Weight: 80.272 kg

DRUGS (5)
  1. IRON [Concomitant]
     Dosage: UNK, DAILY
  2. SUTENT [Suspect]
     Dosage: 50 MG, UNK
     Dates: start: 20120630
  3. SUTENT [Suspect]
     Indication: RENAL CELL CARCINOMA
     Dosage: 50 MG, UNK
     Dates: start: 20120520
  4. TYLENOL [Concomitant]
     Dosage: UNK, AS NEEDED
  5. STOOL SOFTENER [Concomitant]
     Dosage: UNK, DAILY

REACTIONS (12)
  - VOMITING [None]
  - PAIN IN EXTREMITY [None]
  - DYSGEUSIA [None]
  - BLISTER [None]
  - BLOOD PRESSURE INCREASED [None]
  - STOMATITIS [None]
  - NAUSEA [None]
  - DISCOMFORT [None]
  - HORDEOLUM [None]
  - EYELID DISORDER [None]
  - WEIGHT INCREASED [None]
  - ALOPECIA [None]
